FAERS Safety Report 23286743 (Version 2)
Quarter: 2023Q4

REPORT INFORMATION
  Report Type: Report from Study
  Country: NZ (occurrence: None)
  Receive Date: 20231212
  Receipt Date: 20231226
  Transmission Date: 20240110
  Serious: Yes (Hospitalization)
  Sender: FDA-Public Use
  Company Number: NZ-MDD US Operations-MDD202312-004687

PATIENT
  Age: 62 Year
  Sex: Male

DRUGS (4)
  1. APOMORPHINE HYDROCHLORIDE [Suspect]
     Active Substance: APOMORPHINE HYDROCHLORIDE
     Indication: Parkinson^s disease
     Dosage: 50 MG/5ML
     Route: 058
     Dates: start: 202111, end: 20231110
  2. USTEKINUMAB [Concomitant]
     Active Substance: USTEKINUMAB
     Indication: Crohn^s disease
     Dosage: NOT PROVIDED
     Dates: start: 202306
  3. THIOGUANINE ANHYDROUS [Concomitant]
     Active Substance: THIOGUANINE ANHYDROUS
     Dosage: NOT PROVIDED
  4. PREDNISONE [Concomitant]
     Active Substance: PREDNISONE
     Dosage: NOT PROVIDED

REACTIONS (3)
  - Application site infection [Unknown]
  - Application site wound [Not Recovered/Not Resolved]
  - Application site nodule [Not Recovered/Not Resolved]
